FAERS Safety Report 8611696-2 (Version None)
Quarter: 2012Q3

REPORT INFORMATION
  Report Type: 
  Country: None (occurrence: None)
  Receive Date: 20120822
  Receipt Date: 20120815
  Transmission Date: 20120928
  Serious: Yes (Hospitalization)
  Sender: FDA-Public Use
  Company Number: US-ROCHE-1042374

PATIENT
  Sex: Female
  Weight: 60.836 kg

DRUGS (4)
  1. ZELBORAF [Suspect]
     Dates: start: 20120611
  2. ZELBORAF [Suspect]
     Dates: start: 20120201
  3. ZELBORAF [Suspect]
     Dosage: THERAPY FOR 36 DAYS
  4. ZELBORAF [Suspect]
     Indication: MALIGNANT MELANOMA
     Route: 048
     Dates: start: 20111226, end: 20120104

REACTIONS (13)
  - MASS [None]
  - RASH ERYTHEMATOUS [None]
  - PERICARDITIS [None]
  - CHILLS [None]
  - MADAROSIS [None]
  - SWELLING FACE [None]
  - RASH [None]
  - ALOPECIA [None]
  - SKIN EXFOLIATION [None]
  - PRURITUS [None]
  - ARTHRALGIA [None]
  - ERYTHEMA [None]
  - MYALGIA [None]
